FAERS Safety Report 14703299 (Version 4)
Quarter: 2022Q3

REPORT INFORMATION
  Report Type: Spontaneous
  Country: US (occurrence: None)
  Receive Date: 20180402
  Receipt Date: 20220812
  Transmission Date: 20221027
  Serious: Yes (Hospitalization, Other)
  Sender: FDA-Public Use
  Company Number: 2018SE37645

PATIENT
  Age: 24422 Day
  Sex: Female
  Weight: 50.8 kg

DRUGS (115)
  1. NEXIUM [Suspect]
     Active Substance: ESOMEPRAZOLE MAGNESIUM
     Indication: Gastrooesophageal reflux disease
     Route: 048
     Dates: start: 200608
  2. OMEPRAZOLE [Suspect]
     Active Substance: OMEPRAZOLE
     Indication: Gastrooesophageal reflux disease
     Dosage: GENERIC
     Route: 065
     Dates: start: 2006, end: 2008
  3. OMEPRAZOLE [Suspect]
     Active Substance: OMEPRAZOLE
     Indication: Gastrooesophageal reflux disease
     Dosage: GENERIC
     Route: 065
     Dates: start: 2006, end: 2017
  4. OMEPRAZOLE [Suspect]
     Active Substance: OMEPRAZOLE
     Indication: Gastrooesophageal reflux disease
     Dosage: GENERIC
     Route: 065
     Dates: end: 2014
  5. DEXILANT [Suspect]
     Active Substance: DEXLANSOPRAZOLE
     Indication: Gastrooesophageal reflux disease
     Route: 065
     Dates: start: 2010, end: 2015
  6. DEXILANT [Suspect]
     Active Substance: DEXLANSOPRAZOLE
     Indication: Gastrooesophageal reflux disease
     Route: 048
     Dates: start: 20110802
  7. PANTOPRAZOLE [Suspect]
     Active Substance: PANTOPRAZOLE
     Indication: Gastrooesophageal reflux disease
     Dosage: GENERIC
     Route: 065
     Dates: start: 2012, end: 2016
  8. PANTOPRAZOLE [Suspect]
     Active Substance: PANTOPRAZOLE
     Indication: Gastrooesophageal reflux disease
     Dosage: BEFORE BREAKFAST
     Route: 048
     Dates: start: 20120806
  9. LISINOPRIL [Concomitant]
     Active Substance: LISINOPRIL
     Indication: Hypertension
     Route: 065
     Dates: start: 2008, end: 2011
  10. LIVALO [Concomitant]
     Active Substance: PITAVASTATIN CALCIUM
     Indication: Blood cholesterol decreased
     Route: 065
     Dates: start: 2013, end: 2014
  11. LOSARTAN POTASSIUM [Concomitant]
     Active Substance: LOSARTAN POTASSIUM
     Indication: Blood pressure diastolic increased
     Route: 065
     Dates: start: 2013, end: 2014
  12. MICARDIS [Concomitant]
     Active Substance: TELMISARTAN
     Indication: Hypertension
     Route: 065
     Dates: start: 2013
  13. NEOMYCIN [Concomitant]
     Active Substance: NEOMYCIN
     Indication: Antibiotic therapy
     Route: 065
     Dates: start: 2012
  14. NEOMYCIN [Concomitant]
     Active Substance: NEOMYCIN
     Indication: Antibiotic therapy
     Route: 065
     Dates: start: 2014
  15. PIROXICAM [Concomitant]
     Active Substance: PIROXICAM
     Indication: Antiinflammatory therapy
     Route: 065
     Dates: start: 2008
  16. PIROXICAM [Concomitant]
     Active Substance: PIROXICAM
     Indication: Antiinflammatory therapy
     Route: 065
     Dates: start: 2014
  17. PLAVIX [Concomitant]
     Active Substance: CLOPIDOGREL BISULFATE
     Indication: Anticoagulant therapy
     Route: 065
     Dates: start: 2007, end: 2012
  18. PLAVIX [Concomitant]
     Active Substance: CLOPIDOGREL BISULFATE
     Indication: Anticoagulant therapy
     Route: 065
     Dates: start: 2014
  19. PLAVIX [Concomitant]
     Active Substance: CLOPIDOGREL BISULFATE
     Indication: Anticoagulant therapy
     Route: 048
     Dates: start: 20110802
  20. SIMVASTATIN [Concomitant]
     Active Substance: SIMVASTATIN
     Indication: Blood cholesterol decreased
     Route: 065
     Dates: start: 2008
  21. SIMVASTATIN [Concomitant]
     Active Substance: SIMVASTATIN
     Indication: Blood cholesterol decreased
     Route: 065
     Dates: start: 2014
  22. SULFAMETHOXAZOLE [Concomitant]
     Active Substance: SULFAMETHOXAZOLE
     Indication: Antibiotic therapy
     Route: 065
     Dates: start: 2012
  23. SULFAMETHOXAZOLE [Concomitant]
     Active Substance: SULFAMETHOXAZOLE
     Indication: Antibiotic therapy
     Route: 065
     Dates: start: 2014
  24. TRAMADOL [Concomitant]
     Active Substance: TRAMADOL
     Indication: Analgesic therapy
     Route: 065
     Dates: start: 2014, end: 2015
  25. TRAMADOL [Concomitant]
     Active Substance: TRAMADOL
     Indication: Analgesic therapy
     Route: 065
     Dates: start: 2014
  26. ACETAMINOPHEN\CODEINE PHOSPHATE [Concomitant]
     Active Substance: ACETAMINOPHEN\CODEINE PHOSPHATE
     Indication: Analgesic therapy
     Route: 065
     Dates: start: 2010, end: 2014
  27. ACETAMINOPHEN\CODEINE PHOSPHATE [Concomitant]
     Active Substance: ACETAMINOPHEN\CODEINE PHOSPHATE
     Indication: Analgesic therapy
     Route: 065
     Dates: start: 2014
  28. AMLODIPINE BESYLATE-BENAZEPRIL [Concomitant]
     Indication: Hypertension
     Route: 065
     Dates: start: 2008, end: 2013
  29. AMLODIPINE BESYLATE-BENAZEPRIL [Concomitant]
     Indication: Hypertension
     Dosage: 5-20 MG TAKE 1 CAPSULE BY MOUTH ONCE DAILY
     Route: 048
     Dates: start: 20110802
  30. AMOXICILLIN [Concomitant]
     Active Substance: AMOXICILLIN
     Indication: Hypertension
     Route: 065
     Dates: start: 2013
  31. ASPIRIN [Concomitant]
     Active Substance: ASPIRIN
     Indication: Anticoagulant therapy
     Route: 065
     Dates: start: 2007, end: 2008
  32. ATORVASTATIN CALCIUM/ LIPITOR [Concomitant]
     Indication: Blood cholesterol decreased
     Route: 065
     Dates: start: 2014, end: 2016
  33. ATORVASTATIN CALCIUM/ LIPITOR [Concomitant]
     Indication: Blood cholesterol decreased
     Route: 048
     Dates: start: 20110802
  34. AZITHROMYCIN [Concomitant]
     Active Substance: AZITHROMYCIN
     Indication: Blood cholesterol decreased
     Route: 065
     Dates: start: 2008, end: 2009
  35. AZITHROMYCIN [Concomitant]
     Active Substance: AZITHROMYCIN
     Indication: Blood cholesterol decreased
     Route: 065
     Dates: start: 2011, end: 2013
  36. BENICAR [Concomitant]
     Active Substance: OLMESARTAN MEDOXOMIL
     Indication: Hypertension
     Route: 065
     Dates: start: 2013, end: 2014
  37. BENICAR [Concomitant]
     Active Substance: OLMESARTAN MEDOXOMIL
     Indication: Hypertension
     Route: 065
     Dates: start: 2011, end: 2013
  38. BETAMETHASONE DIPROPIONATE [Concomitant]
     Active Substance: BETAMETHASONE DIPROPIONATE
     Indication: Hypertension
     Route: 065
     Dates: start: 2007, end: 2009
  39. BETAMETHASONE DIPROPIONATE [Concomitant]
     Active Substance: BETAMETHASONE DIPROPIONATE
     Indication: Hypertension
     Route: 065
     Dates: start: 2011, end: 2013
  40. BOOSTRIX [Concomitant]
     Active Substance: TETANUS TOXOID, REDUCED DIPHTHERIA TOXOID AND ACELLULAR PERTUSSIS VACCINE, ADSORBED ANTIGENS
     Indication: Hypertension
     Route: 065
     Dates: start: 2016
  41. CALCIUM CARBONATE\ERGOCALCIFEROL\RETINOL [Concomitant]
     Active Substance: CALCIUM CARBONATE\ERGOCALCIFEROL\RETINOL
     Indication: Psoriasis
     Route: 065
     Dates: start: 2014, end: 2016
  42. CALCIUM ACETATE [Concomitant]
     Active Substance: CALCIUM ACETATE
     Indication: Hypertension
     Route: 065
     Dates: start: 2016
  43. CARVIDILOL [Concomitant]
     Indication: Hypertension
     Route: 065
     Dates: start: 2015, end: 2016
  44. CEFAZOLIN SODIUM [Concomitant]
     Active Substance: CEFAZOLIN SODIUM
     Indication: Hypertension
     Route: 065
     Dates: start: 2016
  45. CEFUROXIME [Concomitant]
     Active Substance: CEFUROXIME
     Indication: Hypertension
     Route: 065
     Dates: start: 2010
  46. CELECOXIB [Concomitant]
     Active Substance: CELECOXIB
     Indication: Arthritis
     Route: 065
     Dates: start: 2015, end: 2016
  47. CEPHALEXIN [Concomitant]
     Active Substance: CEPHALEXIN
     Indication: Arthritis
     Route: 065
     Dates: start: 2007
  48. CEPHALEXIN [Concomitant]
     Active Substance: CEPHALEXIN
     Indication: Arthritis
     Route: 065
     Dates: start: 2016
  49. CHOLESTYRAMINE [Concomitant]
     Active Substance: CHOLESTYRAMINE
     Indication: Blood cholesterol decreased
     Route: 065
     Dates: start: 2014, end: 2015
  50. CHOLESTYRAMINE [Concomitant]
     Active Substance: CHOLESTYRAMINE
     Indication: Blood cholesterol decreased
     Route: 065
     Dates: start: 2017
  51. CILOSTAZOL [Concomitant]
     Active Substance: CILOSTAZOL
     Indication: Blood cholesterol decreased
     Route: 065
     Dates: start: 2014, end: 2015
  52. CIPROFLOXACIN HYDROCHLORIDE [Concomitant]
     Active Substance: CIPROFLOXACIN HYDROCHLORIDE
     Indication: Blood cholesterol decreased
     Route: 065
     Dates: start: 2014
  53. CLINDESSE [Concomitant]
     Active Substance: CLINDAMYCIN PHOSPHATE
     Indication: Blood cholesterol decreased
     Route: 065
     Dates: start: 2014
  54. BETAMETHASONE\CLOTRIMAZOLE [Concomitant]
     Active Substance: BETAMETHASONE\CLOTRIMAZOLE
     Indication: Fungal infection
     Route: 065
     Dates: start: 2012, end: 2013
  55. BETAMETHASONE\CLOTRIMAZOLE [Concomitant]
     Active Substance: BETAMETHASONE\CLOTRIMAZOLE
     Indication: Fungal infection
     Route: 065
     Dates: start: 2017
  56. CRESTOR [Concomitant]
     Active Substance: ROSUVASTATIN CALCIUM
     Indication: Blood cholesterol decreased
     Route: 065
     Dates: start: 2009, end: 2010
  57. DOVONEX [Concomitant]
     Active Substance: CALCIPOTRIENE
     Indication: Psoriasis
     Route: 065
     Dates: start: 2006
  58. DOXYCYCLINE HYCLATE [Concomitant]
     Active Substance: DOXYCYCLINE HYCLATE
     Indication: Psoriasis
     Route: 065
     Dates: start: 2015
  59. DRONABINOL [Concomitant]
     Active Substance: DRONABINOL
     Indication: Psoriasis
     Route: 065
     Dates: start: 2015, end: 2016
  60. ENALAPRIL MALEATE [Concomitant]
     Active Substance: ENALAPRIL MALEATE
     Indication: Hypertension
     Route: 065
     Dates: start: 2006, end: 2008
  61. FERROUS SULFATE [Concomitant]
     Active Substance: FERROUS SULFATE
     Indication: Mineral supplementation
     Route: 065
     Dates: start: 2015
  62. FLUCONAZOLE [Concomitant]
     Active Substance: FLUCONAZOLE
     Indication: Fungal infection
     Route: 065
     Dates: start: 2007
  63. FLUCONAZOLE [Concomitant]
     Active Substance: FLUCONAZOLE
     Indication: Fungal infection
     Route: 065
     Dates: start: 2012, end: 2013
  64. FLUCONAZOLE [Concomitant]
     Active Substance: FLUCONAZOLE
     Indication: Fungal infection
     Route: 065
     Dates: start: 2017
  65. FLUVIRIN NOS [Concomitant]
     Active Substance: INFLUENZA VIRUS VACCINE
     Indication: Antiviral prophylaxis
     Route: 065
     Dates: start: 2010, end: 2011
  66. FLUVIRIN NOS [Concomitant]
     Active Substance: INFLUENZA VIRUS VACCINE
     Indication: Antiviral prophylaxis
     Route: 065
     Dates: start: 2012, end: 2013
  67. FLUVIRIN NOS [Concomitant]
     Active Substance: INFLUENZA VIRUS VACCINE
     Indication: Antiviral prophylaxis
     Route: 065
     Dates: start: 2017
  68. FUROSEMIDE [Concomitant]
     Active Substance: FUROSEMIDE
     Indication: Diuretic therapy
     Route: 065
     Dates: start: 2007, end: 2008
  69. FUROSEMIDE [Concomitant]
     Active Substance: FUROSEMIDE
     Indication: Diuretic therapy
     Route: 065
     Dates: start: 2013
  70. GLUMETZA [Concomitant]
     Active Substance: METFORMIN HYDROCHLORIDE
     Indication: Diabetes mellitus
     Route: 065
     Dates: start: 2011, end: 2013
  71. GLUMETZA [Concomitant]
     Active Substance: METFORMIN HYDROCHLORIDE
     Indication: Diabetes mellitus
     Route: 048
     Dates: start: 20110802
  72. HUMIRA [Concomitant]
     Active Substance: ADALIMUMAB
     Indication: Psoriasis
     Route: 065
     Dates: start: 2011, end: 2013
  73. HUMIRA [Concomitant]
     Active Substance: ADALIMUMAB
     Indication: Psoriasis
     Route: 065
     Dates: start: 2013
  74. HUMIRA [Concomitant]
     Active Substance: ADALIMUMAB
     Indication: Psoriasis
     Route: 065
     Dates: start: 2017
  75. HUMIRA [Concomitant]
     Active Substance: ADALIMUMAB
     Indication: Psoriasis
     Dosage: EVERY FRIDAY
     Route: 065
     Dates: start: 20110802
  76. HYDRALAZINE [Concomitant]
     Active Substance: HYDRALAZINE HYDROCHLORIDE
     Indication: Hypertension
     Route: 065
     Dates: start: 2015
  77. HYDRALAZINE [Concomitant]
     Active Substance: HYDRALAZINE HYDROCHLORIDE
     Indication: Hypertension
     Route: 065
     Dates: start: 2013
  78. HYDRALAZINE [Concomitant]
     Active Substance: HYDRALAZINE HYDROCHLORIDE
     Indication: Hypertension
     Route: 065
     Dates: start: 2017
  79. ACETAMINOPHEN\HYDROCODONE BITARTRATE [Concomitant]
     Active Substance: ACETAMINOPHEN\HYDROCODONE BITARTRATE
     Indication: Analgesic therapy
     Route: 065
     Dates: start: 2007
  80. HYDROCORTISONE [Concomitant]
     Active Substance: HYDROCORTISONE
     Indication: Analgesic therapy
     Route: 065
     Dates: start: 2007, end: 2008
  81. IBUPROFEN [Concomitant]
     Active Substance: IBUPROFEN
     Indication: Analgesic therapy
     Route: 065
     Dates: start: 2014
  82. ISOSORBIDE MONONITRATE [Concomitant]
     Active Substance: ISOSORBIDE MONONITRATE
     Indication: Hypertension
     Route: 065
     Dates: start: 2007, end: 2008
  83. LANTUS SOLOSTAR [Concomitant]
     Active Substance: INSULIN GLARGINE
     Indication: Diabetes mellitus
     Route: 065
     Dates: start: 2009, end: 2014
  84. LEVOXYL [Concomitant]
     Active Substance: LEVOTHYROXINE SODIUM
     Indication: Hypothyroidism
     Route: 065
     Dates: start: 2011, end: 2013
  85. LEVOXYL [Concomitant]
     Active Substance: LEVOTHYROXINE SODIUM
     Indication: Hypothyroidism
     Route: 065
     Dates: start: 20120806
  86. LOPERAMIDE [Concomitant]
     Active Substance: LOPERAMIDE
     Indication: Antidiarrhoeal supportive care
     Route: 065
     Dates: start: 2014, end: 2016
  87. LOVAZA [Concomitant]
     Active Substance: OMEGA-3-ACID ETHYL ESTERS
     Indication: Vitamin A
     Route: 065
     Dates: start: 2009, end: 2013
  88. LOVAZA [Concomitant]
     Active Substance: OMEGA-3-ACID ETHYL ESTERS
     Indication: Vitamin A
     Route: 065
     Dates: start: 20110802
  89. MAGNESIUM OXIDE [Concomitant]
     Active Substance: MAGNESIUM OXIDE
     Indication: Mineral supplementation
     Route: 065
     Dates: start: 2014, end: 2016
  90. MEGESTROL ACETATE [Concomitant]
     Active Substance: MEGESTROL ACETATE
     Route: 065
     Dates: start: 2014, end: 2016
  91. METOCLOPRAMIDE [Concomitant]
     Active Substance: METOCLOPRAMIDE
     Indication: Gastrooesophageal reflux disease
     Route: 065
     Dates: start: 2015
  92. METOPROLOL TARTRATE [Concomitant]
     Active Substance: METOPROLOL TARTRATE
     Indication: Hypertension
     Route: 065
     Dates: start: 2007, end: 2008
  93. METOPROLOL TARTRATE [Concomitant]
     Active Substance: METOPROLOL TARTRATE
     Indication: Hypertension
     Route: 065
     Dates: start: 2015
  94. METRONIDAZOLE [Concomitant]
     Active Substance: METRONIDAZOLE
     Indication: Hypertension
     Route: 065
     Dates: start: 2014, end: 2015
  95. METRONIDAZOLE [Concomitant]
     Active Substance: METRONIDAZOLE
     Indication: Hypertension
     Route: 065
     Dates: start: 2015
  96. NIFEDIPINE [Concomitant]
     Active Substance: NIFEDIPINE
     Indication: Hypertension
     Route: 065
     Dates: start: 2016
  97. NITROGLYCERIN/ NITROGLYCERIN [Concomitant]
     Indication: Coronary artery disease
     Route: 065
     Dates: start: 2009
  98. NITROGLYCERIN/ NITROGLYCERIN [Concomitant]
     Indication: Coronary artery disease
     Route: 065
     Dates: start: 2015
  99. NOVOLOG [Concomitant]
     Active Substance: INSULIN ASPART
     Indication: Diabetes mellitus
     Route: 065
     Dates: start: 2010, end: 2012
  100. NOVOLOG [Concomitant]
     Active Substance: INSULIN ASPART
     Indication: Diabetes mellitus
     Route: 065
     Dates: start: 2014
  101. NOVOLOG [Concomitant]
     Active Substance: INSULIN ASPART
     Indication: Diabetes mellitus
     Dosage: INJECT 17 UNITS INTO THE SKIN TWICE DAILY BEFORE BREAKFAST AND DINNER
     Route: 065
     Dates: start: 20110802
  102. NYSTATIN [Concomitant]
     Active Substance: NYSTATIN
     Indication: Fungal infection
     Route: 065
     Dates: start: 2015
  103. NYSTATIN [Concomitant]
     Active Substance: NYSTATIN
     Indication: Fungal infection
     Route: 065
     Dates: start: 2014
  104. OXYCODONE [Concomitant]
     Active Substance: OXYCODONE
     Indication: Analgesic therapy
     Route: 065
     Dates: start: 2014
  105. PANTOPRAZOLE SODIUM [Concomitant]
     Active Substance: PANTOPRAZOLE SODIUM
     Indication: Gastrooesophageal reflux disease
     Route: 065
     Dates: start: 2012, end: 2016
  106. PAROXETINE HYDROCHLORIDE [Concomitant]
     Active Substance: PAROXETINE HYDROCHLORIDE
     Indication: Depression
     Route: 065
     Dates: start: 2012, end: 2016
  107. PAROXETINE HYDROCHLORIDE [Concomitant]
     Active Substance: PAROXETINE HYDROCHLORIDE
     Indication: Depression
     Route: 065
     Dates: start: 2014
  108. POLYETHYLENE GLYCOL [Concomitant]
     Active Substance: POLYETHYLENE GLYCOL
     Indication: Laxative supportive care
     Route: 065
     Dates: start: 2014
  109. POTASSIUM CHLORIDE [Concomitant]
     Active Substance: POTASSIUM CHLORIDE
     Indication: Mineral supplementation
     Route: 065
     Dates: start: 2008
  110. POTASSIUM CHLORIDE [Concomitant]
     Active Substance: POTASSIUM CHLORIDE
     Indication: Mineral supplementation
     Route: 065
     Dates: start: 2015
  111. PRANDIN [Concomitant]
     Active Substance: REPAGLINIDE
     Indication: Diabetes mellitus
     Route: 065
     Dates: start: 2009, end: 2010
  112. PREDNISONE [Concomitant]
     Active Substance: PREDNISONE
     Indication: Diabetes mellitus
     Route: 065
     Dates: start: 2015, end: 2016
  113. PREMARIN [Concomitant]
     Active Substance: ESTROGENS, CONJUGATED
     Indication: Hormone therapy
     Route: 065
     Dates: start: 2006
  114. SIMCOR [Concomitant]
     Active Substance: NIACIN\SIMVASTATIN
     Indication: Blood cholesterol decreased
     Route: 065
     Dates: start: 2006
  115. SODIUM BICARBONATE [Concomitant]
     Active Substance: SODIUM BICARBONATE
     Indication: Dyspepsia
     Route: 065
     Dates: start: 2016

REACTIONS (5)
  - Acute kidney injury [Not Recovered/Not Resolved]
  - Chronic kidney disease [Not Recovered/Not Resolved]
  - End stage renal disease [Not Recovered/Not Resolved]
  - Renal tubular necrosis [Unknown]
  - Renal failure [Unknown]

NARRATIVE: CASE EVENT DATE: 20141218
